FAERS Safety Report 5693614-2 (Version None)
Quarter: 2008Q2

REPORT INFORMATION
  Report Type: 
  Country: None (occurrence: None)
  Receive Date: 20080403
  Receipt Date: 20080331
  Transmission Date: 20081010
  Serious: Yes (Hospitalization)
  Sender: FDA-Public Use
  Company Number: US-GILEAD-2008-0015922

PATIENT
  Sex: Male

DRUGS (9)
  1. LETAIRIS [Suspect]
     Indication: PULMONARY HYPERTENSION
     Route: 048
     Dates: start: 20080217, end: 20080321
  2. LASIX [Concomitant]
     Route: 048
  3. ZEBETA [Concomitant]
     Route: 048
  4. ATACAND [Concomitant]
     Route: 048
  5. MULTI-VITAMIN [Concomitant]
     Route: 048
  6. CALCIUM [Concomitant]
     Route: 048
  7. FLOMAX [Concomitant]
     Route: 048
  8. LIPITOR [Concomitant]
     Route: 048
  9. ZINC [Concomitant]
     Route: 048

REACTIONS (1)
  - DYSPNOEA [None]
